FAERS Safety Report 9126851 (Version 1)
Quarter: 2013Q1

REPORT INFORMATION
  Report Type: Spontaneous
  Country: US (occurrence: US)
  Receive Date: 20130228
  Receipt Date: 20130228
  Transmission Date: 20140127
  Serious: Yes (Other)
  Sender: FDA-Public Use
  Company Number: US-INCYTE CORPORATION-2012IN001261

PATIENT
  Age: 75 Year
  Sex: Male

DRUGS (6)
  1. JAKAFI [Suspect]
     Indication: MYELOFIBROSIS
     Dosage: 20 MG, BID
     Route: 048
     Dates: start: 20120227, end: 2012
  2. JAKAFI [Suspect]
     Dosage: 10 MG, BID
     Route: 048
     Dates: start: 20120710
  3. JAKAFI [Suspect]
     Dosage: 15 MG, BID
     Route: 048
  4. ALLOPURINOL [Concomitant]
  5. GABAPENTIN [Concomitant]
  6. VALACICLOVIR [Concomitant]

REACTIONS (2)
  - Age-related macular degeneration [Unknown]
  - Platelet count decreased [Unknown]
